FAERS Safety Report 7513443-4 (Version None)
Quarter: 2011Q2

REPORT INFORMATION
  Report Type: 
  Country: None (occurrence: None)
  Receive Date: 20110531
  Receipt Date: 20110517
  Transmission Date: 20111010
  Serious: Yes (Other)
  Sender: FDA-Public Use
  Company Number: US-UCBSA-033107

PATIENT
  Sex: Male

DRUGS (8)
  1. ZONIGRAM [Concomitant]
     Dates: end: 20090501
  2. KEPPRA XR [Concomitant]
     Indication: CONVULSION
     Dosage: AT BEDTIME
     Dates: start: 20050101
  3. VIMPAT [Suspect]
     Indication: EPILEPSY
     Route: 048
     Dates: start: 20090821
  4. VIMPAT [Suspect]
  5. DILANTIN [Concomitant]
     Indication: CONVULSION
     Dosage: 250 MG AM AND 200 MG PM
     Dates: start: 20090519
  6. PLAVIX [Concomitant]
  7. VIMPAT [Suspect]
  8. LIPITOR [Concomitant]

REACTIONS (3)
  - CONVULSION [None]
  - BACK PAIN [None]
  - MUSCLE SPASMS [None]
